FAERS Safety Report 5332247-4 (Version None)
Quarter: 2007Q2

REPORT INFORMATION
  Report Type: 
  Country: None (occurrence: None)
  Receive Date: 20070523
  Receipt Date: 20070417
  Transmission Date: 20071010
  Serious: Yes (Hospitalization)
  Sender: FDA-Public Use
  Company Number: JP-ROCHE-490645

PATIENT
  Age: 5 Year
  Sex: Male
  Weight: 18 kg

DRUGS (6)
  1. TAMIFLU [Suspect]
     Dosage: DOSE FORM: DRY SYRUP.
     Route: 048
     Dates: start: 20070319, end: 20070319
  2. FLOMOX [Concomitant]
     Route: 048
     Dates: start: 20070319
  3. PERIACTIN [Concomitant]
     Route: 048
     Dates: start: 20070319
  4. ACETAMINOPHEN [Concomitant]
     Dosage: TRADE NAME REPORTED AS ASPAIN.
     Route: 048
     Dates: start: 20070319
  5. BIOFERMIN [Concomitant]
     Route: 048
     Dates: start: 20070319
  6. MUCOSAL [Concomitant]
     Route: 048
     Dates: start: 20070319

REACTIONS (1)
  - CONVULSION [None]
